FAERS Safety Report 7329556-6 (Version None)
Quarter: 2011Q1

REPORT INFORMATION
  Report Type: 
  Country: None (occurrence: None)
  Receive Date: 20110303
  Receipt Date: 20110224
  Transmission Date: 20110831
  Serious: Yes (Hospitalization)
  Sender: FDA-Public Use
  Company Number: US-B.I. PHARMACEUTICALS,INC./RIDGEFIELD-2011-BP-05181BP

PATIENT
  Age: 88 Year
  Sex: Male

DRUGS (4)
  1. PRADAXA [Suspect]
     Dosage: 300 MG
     Route: 048
     Dates: start: 20101201
  2. PRADAXA [Suspect]
     Dosage: 300 MG
     Route: 048
     Dates: start: 20101221
  3. ASPIRIN [Concomitant]
     Dosage: 325 MG
     Route: 048
  4. PLAVIX [Concomitant]
     Route: 048
     Dates: end: 20101201

REACTIONS (6)
  - COUGH [None]
  - ANAEMIA [None]
  - HAEMORRHAGE [None]
  - HAEMOPTYSIS [None]
  - FAECES DISCOLOURED [None]
  - CONDITION AGGRAVATED [None]
